FAERS Safety Report 7102552-X (Version None)
Quarter: 2010Q4

REPORT INFORMATION
  Report Type: 
  Country: None (occurrence: None)
  Receive Date: 20101115
  Receipt Date: 20101108
  Transmission Date: 20110411
  Serious: No
  Sender: FDA-Public Use
  Company Number: BR-ROCHE-740615

PATIENT
  Sex: Female
  Weight: 61 kg

DRUGS (4)
  1. ROACUTAN [Suspect]
     Indication: ACNE
     Dosage: STRENGTH: 10 AND 20 MG
     Route: 048
     Dates: start: 20100501, end: 20100101
  2. ROACUTAN [Suspect]
     Dosage: STRENGTH: 20 MG
     Route: 048
     Dates: start: 20100101, end: 20100101
  3. LEVOTHYROXINE SODIUM [Concomitant]
     Indication: THYROID DISORDER
     Dosage: DRUG REPORTED : LEVOID
     Route: 048
  4. MINIMA [Concomitant]
     Indication: CONTRACEPTION
     Route: 048

REACTIONS (2)
  - NO ADVERSE EVENT [None]
  - PREGNANCY [None]
